FAERS Safety Report 24119661 (Version 1)
Quarter: 2024Q3

REPORT INFORMATION
  Report Type: Report from Study
  Country: US (occurrence: None)
  Receive Date: 20240722
  Receipt Date: 20240722
  Transmission Date: 20241016
  Serious: Yes (Other)
  Sender: ASTRAZENECA
  Company Number: 2020SF11703

PATIENT
  Sex: Female

DRUGS (1)
  1. LYNPARZA [Suspect]
     Active Substance: OLAPARIB
     Indication: Ovarian cancer
     Route: 048

REACTIONS (10)
  - Blood urea increased [Unknown]
  - Fatigue [Not Recovered/Not Resolved]
  - Red blood cell count decreased [Unknown]
  - Abdominal pain upper [Unknown]
  - Dyspnoea [Unknown]
  - Tinnitus [Unknown]
  - Anxiety [Not Recovered/Not Resolved]
  - Back pain [Unknown]
  - Abdominal distension [Unknown]
  - Hypertension [Unknown]
